FAERS Safety Report 7494870-0 (Version None)
Quarter: 2011Q2

REPORT INFORMATION
  Report Type: 
  Country: None (occurrence: None)
  Receive Date: 20110520
  Receipt Date: 20110517
  Transmission Date: 20111010
  Serious: Yes (Death, Other)
  Sender: FDA-Public Use
  Company Number: PHHY2010MX63002

PATIENT
  Sex: Female

DRUGS (1)
  1. TEGRETOL [Suspect]
     Indication: CONVULSION
     Dosage: 3 ML PER DAY

REACTIONS (5)
  - NEOPLASM [None]
  - CONVULSION [None]
  - RENAL FAILURE ACUTE [None]
  - COMA [None]
  - MULTI-ORGAN FAILURE [None]
